FAERS Safety Report 6270172-5 (Version None)
Quarter: 2009Q3

REPORT INFORMATION
  Report Type: 
  Country: None (occurrence: None)
  Receive Date: 20090716
  Receipt Date: 20090417
  Transmission Date: 20100115
  Serious: No
  Sender: FDA-Public Use
  Company Number: US-BAYER-200918738NA

PATIENT
  Age: 51 Year
  Sex: Female

DRUGS (1)
  1. ANGELIQ [Suspect]
     Indication: HOT FLUSH
     Dosage: CONTINUOUS
     Route: 048
     Dates: start: 20090306

REACTIONS (1)
  - NO ADVERSE EVENT [None]
